FAERS Safety Report 5937955-X (Version None)
Quarter: 2008Q4

REPORT INFORMATION
  Report Type: 
  Country: None (occurrence: None)
  Receive Date: 20081031
  Receipt Date: 20081020
  Transmission Date: 20090506
  Serious: Yes (Other)
  Sender: FDA-Public Use
  Company Number: US-PFIZER INC-2008068044

PATIENT
  Sex: Male

DRUGS (1)
  1. CHANTIX [Suspect]
     Indication: SMOKING CESSATION THERAPY
     Dosage: FREQ:DAILY
     Route: 048

REACTIONS (4)
  - ALCOHOLISM [None]
  - ANXIETY [None]
  - DEPRESSION [None]
  - SUICIDAL IDEATION [None]
